FAERS Safety Report 10260965 (Version 1)
Quarter: 2014Q2

REPORT INFORMATION
  Report Type: Spontaneous
  Country: US (occurrence: None)
  Receive Date: 20140623
  Receipt Date: 20140623
  Transmission Date: 20141212
  Serious: Yes (Hospitalization)
  Sender: FDA-Public Use
  Company Number: US-H14001-14-00069

PATIENT
  Age: 38 Year
  Sex: Male

DRUGS (3)
  1. TOPIRAMATE (TOPIRAMATE) (UNKNOWN) (TOPIRAMATE) [Suspect]
     Indication: PRODUCT USED FOR UNKNOWN INDICATION
  2. CARBAMAZINE (CARBAMAZEPINE) (UNKNOWN) (CARBAMAZINE) [Concomitant]
  3. RISPERIDONE [Concomitant]

REACTIONS (12)
  - Unresponsive to stimuli [None]
  - Blood pressure diastolic decreased [None]
  - Oxygen saturation decreased [None]
  - Hyperthermia [None]
  - Disseminated intravascular coagulation [None]
  - Renal failure acute [None]
  - Liver injury [None]
  - Hypotension [None]
  - Ischaemic gastritis [None]
  - Gastrointestinal haemorrhage [None]
  - Gastric perforation [None]
  - Heat stroke [None]
